FAERS Safety Report 11666175 (Version 1)
Quarter: 2015Q4

REPORT INFORMATION
  Report Type: Spontaneous
  Country: US (occurrence: US)
  Receive Date: 20151027
  Receipt Date: 20151027
  Transmission Date: 20160304
  Serious: No
  Sender: FDA-Public Use
  Company Number: US-ELI_LILLY_AND_COMPANY-US201001004036

PATIENT
  Age: 58 Year
  Sex: Female

DRUGS (1)
  1. FORTEO [Suspect]
     Active Substance: TERIPARATIDE
     Indication: OSTEOPOROSIS
     Dosage: 20 UG, DAILY (1/D)
     Dates: start: 200910

REACTIONS (8)
  - Injection site vesicles [Unknown]
  - Breast atrophy [Unknown]
  - Malaise [Unknown]
  - Muscle disorder [Unknown]
  - Injection site bruising [Unknown]
  - Weight decreased [Unknown]
  - Body fat disorder [Unknown]
  - Injection site pain [Unknown]
